FAERS Safety Report 5766744-4 (Version None)
Quarter: 2008Q2

REPORT INFORMATION
  Report Type: 
  Country: None (occurrence: None)
  Receive Date: 20080610
  Receipt Date: 20080610
  Transmission Date: 20081010
  Serious: Yes (Disabling)
  Sender: FDA-Public Use
  Company Number: None

PATIENT
  Age: 48 Year
  Sex: Female
  Weight: 64.4108 kg

DRUGS (1)
  1. CEPHALEXIN [Suspect]
     Indication: SKIN INFECTION
     Dosage: 1 PILL 3X A DAY PO
     Route: 048
     Dates: start: 20080527, end: 20080603

REACTIONS (8)
  - ARTHRALGIA [None]
  - BLISTER [None]
  - MUSCULOSKELETAL STIFFNESS [None]
  - RASH [None]
  - RASH PRURITIC [None]
  - VAGINAL INFECTION [None]
  - VULVAL DISORDER [None]
  - VULVOVAGINAL DISCOMFORT [None]
